FAERS Safety Report 15274908 (Version 2)
Quarter: 2019Q4

REPORT INFORMATION
  Report Type: Spontaneous
  Country: US (occurrence: US)
  Receive Date: 20180814
  Receipt Date: 20191004
  Transmission Date: 20200122
  Serious: No
  Sender: FDA-Public Use
  Company Number: US-SA-2018SA221946

PATIENT
  Age: 14 Year
  Sex: Male

DRUGS (1)
  1. FABRAZYME [Suspect]
     Active Substance: AGALSIDASE BETA
     Dosage: UNK, UNK
     Route: 041
     Dates: start: 20121031, end: 20190904

REACTIONS (2)
  - Unevaluable event [Unknown]
  - Malaise [Unknown]

NARRATIVE: CASE EVENT DATE: 2019
